FAERS Safety Report 10558750 (Version 1)
Quarter: 2014Q4

REPORT INFORMATION
  Report Type: Spontaneous
  Country: US (occurrence: US)
  Receive Date: 20141031
  Receipt Date: 20141031
  Transmission Date: 20150529
  Serious: Yes (Other)
  Sender: FDA-Public Use
  Company Number: US-ELI_LILLY_AND_COMPANY-US201410008658

PATIENT
  Sex: Male

DRUGS (28)
  1. ISOSORBIDE MONONITRATE. [Concomitant]
     Active Substance: ISOSORBIDE MONONITRATE
  2. B COMPLEX                          /00212701/ [Concomitant]
  3. PRENATAL VITAMINS                  /01549301/ [Concomitant]
     Active Substance: VITAMINS
  4. VITAMIN B12 [Concomitant]
     Active Substance: CYANOCOBALAMIN
     Dosage: UNK, MONTHLY (1/M)
  5. ALENDRONATE [Concomitant]
     Active Substance: ALENDRONATE SODIUM
  6. COQ10                              /00517201/ [Concomitant]
  7. IRON [Concomitant]
     Active Substance: IRON
  8. GEMFIBROZIL. [Concomitant]
     Active Substance: GEMFIBROZIL
  9. LEVOTHYROXINE [Concomitant]
     Active Substance: LEVOTHYROXINE
  10. WARFARIN [Concomitant]
     Active Substance: WARFARIN
  11. LANTUS [Concomitant]
     Active Substance: INSULIN GLARGINE
  12. JANUVIA [Concomitant]
     Active Substance: SITAGLIPTIN PHOSPHATE
     Dosage: 25 MG, UNK
  13. NITROGLYCERIN. [Concomitant]
     Active Substance: NITROGLYCERIN
     Dosage: UNK, PRN
  14. VITAMIN D                          /00107901/ [Concomitant]
     Active Substance: ERGOCALCIFEROL
  15. GARLIC                             /01570501/ [Concomitant]
  16. CALCIUM [Concomitant]
     Active Substance: CALCIUM
  17. MAGNESIUM [Concomitant]
     Active Substance: MAGNESIUM
  18. COZAAR [Concomitant]
     Active Substance: LOSARTAN POTASSIUM
  19. KLOR-CON [Concomitant]
     Active Substance: POTASSIUM CHLORIDE
  20. SIMVASTATIN. [Concomitant]
     Active Substance: SIMVASTATIN
  21. BABY ASPIRIN [Concomitant]
     Active Substance: ASPIRIN
  22. HUMALOG [Suspect]
     Active Substance: INSULIN LISPRO
     Indication: TYPE 2 DIABETES MELLITUS
     Dosage: UNK UNK, UNKNOWN
     Route: 065
     Dates: start: 2005
  23. ZOLOFT [Concomitant]
     Active Substance: SERTRALINE HYDROCHLORIDE
  24. ALLOPURINOL. [Concomitant]
     Active Substance: ALLOPURINOL
  25. COREG [Concomitant]
     Active Substance: CARVEDILOL
  26. FUROSEMIDE. [Concomitant]
     Active Substance: FUROSEMIDE
  27. FISH OIL [Concomitant]
     Active Substance: FISH OIL
  28. CINNAMON                           /01647501/ [Concomitant]
     Active Substance: CINNAMON

REACTIONS (5)
  - Lower limb fracture [Unknown]
  - Cardiac disorder [Unknown]
  - Pneumonia [Unknown]
  - Upper limb fracture [Unknown]
  - Foot fracture [Unknown]

NARRATIVE: CASE EVENT DATE: 2010
